FAERS Safety Report 18416147 (Version 1)
Quarter: 2020Q4

REPORT INFORMATION
  Report Type: Report from Study
  Country: MX (occurrence: MX)
  Receive Date: 20201022
  Receipt Date: 20201022
  Transmission Date: 20210114
  Serious: Yes (Other)
  Sender: FDA-Public Use
  Company Number: NVSC2020MX282987

PATIENT
  Sex: Male

DRUGS (2)
  1. TASIGNA [Suspect]
     Active Substance: NILOTINIB
     Indication: CHRONIC MYELOID LEUKAEMIA
     Dosage: 200 MG
     Route: 048
     Dates: start: 201601
  2. TASIGNA [Suspect]
     Active Substance: NILOTINIB
     Dosage: 200 MG
     Route: 048

REACTIONS (4)
  - Dizziness [Unknown]
  - Bone pain [Unknown]
  - Hepatic cirrhosis [Unknown]
  - Fatigue [Unknown]

NARRATIVE: CASE EVENT DATE: 2019
